FAERS Safety Report 7384727-8 (Version None)
Quarter: 2011Q1

REPORT INFORMATION
  Report Type: 
  Country: None (occurrence: None)
  Receive Date: 20110330
  Receipt Date: 20110316
  Transmission Date: 20110831
  Serious: Yes (Hospitalization, Other)
  Sender: FDA-Public Use
  Company Number: PHHY2011US21759

PATIENT
  Age: 74 Year
  Sex: Female

DRUGS (7)
  1. DIOVAN HCT [Suspect]
     Dosage: 1 DF, UNK
     Dates: start: 20020101
  2. DIOVAN HCT [Suspect]
     Dosage: UNK
     Dates: start: 20060101
  3. HYZAAR [Concomitant]
  4. DIOVAN HCT [Suspect]
     Dosage: UNK
     Dates: start: 20050101
  5. IMDUR [Concomitant]
  6. DIOVAN HCT [Suspect]
     Dosage: UNK
     Dates: start: 20070101
  7. DIOVAN HCT [Suspect]
     Dosage: UNK
     Dates: start: 20040101

REACTIONS (7)
  - ARTERIAL OCCLUSIVE DISEASE [None]
  - COUGH [None]
  - BLOOD PRESSURE INCREASED [None]
  - PNEUMONIA [None]
  - MYOCARDIAL INFARCTION [None]
  - ERYTHEMA [None]
  - BRONCHITIS [None]
